FAERS Safety Report 7621643-8 (Version None)
Quarter: 2011Q3

REPORT INFORMATION
  Report Type: 
  Country: None (occurrence: None)
  Receive Date: 20110719
  Receipt Date: 20101006
  Transmission Date: 20111222
  Serious: Yes (Other)
  Sender: FDA-Public Use
  Company Number: BE-BAYER-201041731GPV

PATIENT
  Age: 55 Year
  Sex: Female

DRUGS (4)
  1. MOXIFLOXACIN HCL [Suspect]
     Indication: BRONCHOPNEUMONIA
     Route: 048
     Dates: start: 20100925, end: 20100925
  2. ACETYLCYSTEINE [Concomitant]
     Dosage: 600 MG (DAILY DOSE), ,
  3. DUSPATALIN [Concomitant]
     Route: 048
  4. ACETAMINOPHEN [Concomitant]
     Dosage: 1 DF (DAILY DOSE), ONCE,
     Dates: start: 20100925

REACTIONS (3)
  - TREMOR [None]
  - HYPERVENTILATION [None]
  - DYSPNOEA [None]
